FAERS Safety Report 7356541-0 (Version None)
Quarter: 2011Q1

REPORT INFORMATION
  Report Type: 
  Country: None (occurrence: None)
  Receive Date: 20110316
  Receipt Date: 20110302
  Transmission Date: 20110831
  Serious: Yes (Hospitalization, Other)
  Sender: FDA-Public Use
  Company Number: PHHY2010BR60357

PATIENT
  Sex: Female

DRUGS (3)
  1. DIOVAN AMLO FIX [Suspect]
     Indication: HYPERTENSION
     Dosage: 1 TABLET DAILY
     Route: 048
  2. AAS [Concomitant]
     Dosage: 1 TABLET DAILY
     Route: 048
  3. CRESTOR [Concomitant]
     Dosage: 1 TABLET DAILY
     Route: 048

REACTIONS (2)
  - HEADACHE [None]
  - CEREBROVASCULAR ACCIDENT [None]
